FAERS Safety Report 9671190 (Version 1)
Quarter: 2013Q4

REPORT INFORMATION
  Report Type: Spontaneous
  Country: US (occurrence: US)
  Receive Date: 20131106
  Receipt Date: 20131106
  Transmission Date: 20140711
  Serious: Yes (Other)
  Sender: FDA-Public Use
  Company Number: US-ASTELLAS-2013US011288

PATIENT
  Age: 67 Year
  Sex: Female
  Weight: 82 kg

DRUGS (6)
  1. VESICARE [Suspect]
     Indication: PRODUCT USED FOR UNKNOWN INDICATION
     Dosage: 5 MG, UID/QD
     Route: 048
     Dates: start: 20130925, end: 201310
  2. LEVOTHYROXINE [Concomitant]
     Indication: HYPOTHYROIDISM
     Dosage: 200 MG, UID/QD
     Route: 048
  3. OMEPRAZOLE [Concomitant]
     Indication: GASTRIC DISORDER
     Dosage: 40 MG, UID/QD
     Route: 048
  4. NEURONTIN [Concomitant]
     Indication: NERVE INJURY
     Dosage: 300 MG, UID/QD
     Route: 048
  5. LOTENSIN                           /00498401/ [Concomitant]
     Indication: BLOOD PRESSURE INCREASED
     Dosage: 10 -12.5 MG DAILY
     Route: 048
  6. PAROXETINE [Concomitant]
     Indication: ANXIETY
     Dosage: 20 MG, UID/QD
     Route: 048

REACTIONS (5)
  - Glossodynia [Unknown]
  - Glossitis [Unknown]
  - Tongue discolouration [Unknown]
  - Swollen tongue [Unknown]
  - Ear pain [Unknown]
